FAERS Safety Report 8412866-9 (Version None)
Quarter: 2012Q2

REPORT INFORMATION
  Report Type: 
  Country: None (occurrence: None)
  Receive Date: 20120605
  Receipt Date: 20120524
  Transmission Date: 20120825
  Serious: No
  Sender: FDA-Public Use
  Company Number: US-AMGEN-USASP2012032777

PATIENT
  Age: 29 Year
  Sex: Female

DRUGS (1)
  1. ENBREL [Suspect]
     Indication: JUVENILE ARTHRITIS
     Dosage: 50 MG, QWK
     Dates: start: 20120430

REACTIONS (14)
  - SINUS CONGESTION [None]
  - LYMPHADENOPATHY [None]
  - INJECTION SITE SWELLING [None]
  - VISION BLURRED [None]
  - MALAISE [None]
  - DRUG EFFECT DECREASED [None]
  - OROPHARYNGEAL PAIN [None]
  - FATIGUE [None]
  - CRYING [None]
  - INJECTION SITE ERYTHEMA [None]
  - INJECTION SITE PRURITUS [None]
  - HEADACHE [None]
  - INJECTION SITE PAIN [None]
  - COUGH [None]
